FAERS Safety Report 4287425-2 (Version None)
Quarter: 2004Q1

REPORT INFORMATION
  Report Type: 
  Country: None (occurrence: None)
  Receive Date: 20040205
  Receipt Date: 20040119
  Transmission Date: 20041129
  Serious: No
  Sender: FDA-Public Use
  Company Number: YITD20040004

PATIENT
  Age: 63 Year
  Sex: Male

DRUGS (7)
  1. SOSEGON (PENTAZOCINE) [Suspect]
     Dates: start: 19941101
  2. NITRAZEPAM [Concomitant]
  3. CHLORPROMAZINE HCL [Concomitant]
  4. PROMETHAZINE HCL [Concomitant]
  5. MIANSERIN HYDROCHLORIDE [Concomitant]
  6. CLONAZEPAM [Concomitant]
  7. SULPIRIDE [Concomitant]

REACTIONS (1)
  - CONVULSION [None]
